FAERS Safety Report 23766279 (Version 4)
Quarter: 2025Q4

REPORT INFORMATION
  Report Type: Report from Study
  Country: KR (occurrence: KR)
  Receive Date: 20240422
  Receipt Date: 20251224
  Transmission Date: 20260117
  Serious: Yes (Hospitalization)
  Sender: ABBVIE
  Company Number: KR-ABBVIE-5724495

PATIENT
  Age: 87 Year
  Sex: Male
  Weight: 76 kg

DRUGS (31)
  1. VENCLEXTA [Suspect]
     Active Substance: VENETOCLAX
     Indication: Acute myeloid leukaemia
     Route: 048
     Dates: start: 20240228, end: 20240314
  2. VENCLEXTA [Suspect]
     Active Substance: VENETOCLAX
     Indication: Acute myeloid leukaemia
     Route: 048
     Dates: start: 20240418, end: 20240502
  3. SPORANOX [Concomitant]
     Active Substance: ITRACONAZOLE
     Indication: Antifungal prophylaxis
     Dosage: SOLUTION 10MG/ML
     Route: 048
     Dates: start: 20240418
  4. Boryung fen [Concomitant]
     Indication: Sputum increased
     Dosage: MUCOMYST SOLN 10%
     Route: 055
     Dates: start: 20240408
  5. TORSEMIDE [Concomitant]
     Active Substance: TORSEMIDE
     Indication: Cardiomegaly
     Dosage: BORYUNG TAB 10MG
     Route: 048
  6. CODEINE [Concomitant]
     Active Substance: CODEINE
     Indication: Pain prophylaxis
     Dosage: TIME INTERVAL: 0.33333333 DAYS: 20MG
     Route: 048
     Dates: end: 20240321
  7. LORAZEPAM [Concomitant]
     Active Substance: LORAZEPAM
     Indication: Panic disorder
     Dosage: 0.5MG
     Route: 048
  8. Levopride [Concomitant]
     Indication: Dyspepsia
     Dosage: TIME INTERVAL: 0.33333333 DAYS: 25MG
     Route: 048
     Dates: start: 202402
  9. ROVETIN [Concomitant]
     Indication: Coronary artery disease
     Dosage: 5MG
     Route: 048
  10. LODIEN [Concomitant]
     Indication: Hypertension
     Dosage: 2.5MG
     Route: 048
     Dates: start: 20240303, end: 20240303
  11. LODIEN [Concomitant]
     Indication: Hypertension
     Dosage: 2.5MG
     Route: 048
     Dates: end: 20240302
  12. FINASTERIDE [Concomitant]
     Active Substance: FINASTERIDE
     Indication: Panic disorder
     Dosage: 5MG
     Route: 048
     Dates: end: 20240328
  13. DIOPASS [Concomitant]
     Indication: Hypertension
     Dosage: 160MG
     Route: 048
     Dates: start: 20240413
  14. HARNAL [Concomitant]
     Active Substance: TAMSULOSIN HYDROCHLORIDE
     Indication: Panic disorder
     Dosage: 0.2MG
     Route: 048
     Dates: end: 20240328
  15. ABILIFY [Concomitant]
     Active Substance: ARIPIPRAZOLE
     Indication: Depressed mood
     Dosage: 1MG
     Route: 048
     Dates: start: 20240417
  16. EZET [Concomitant]
     Indication: Coronary artery disease
     Dosage: 10MG
     Route: 048
  17. Phenil [Concomitant]
     Indication: Prophylaxis
     Dosage: INJ?PRN
     Route: 042
     Dates: start: 20240228
  18. ESCITALOPRAM [Concomitant]
     Active Substance: ESCITALOPRAM OXALATE
     Indication: Panic disorder
     Dosage: 10MG
     Route: 048
  19. LENOGRASTIM [Concomitant]
     Active Substance: LENOGRASTIM
     Indication: Neutropenia
     Dosage: INJ 250MCG
     Route: 042
     Dates: start: 20240229, end: 20240307
  20. LENOGRASTIM [Concomitant]
     Active Substance: LENOGRASTIM
     Indication: Neutropenia
     Dosage: INJ 250MCG
     Route: 042
     Dates: start: 20240310, end: 20240310
  21. NOXAFIL [Concomitant]
     Active Substance: POSACONAZOLE
     Indication: Antibiotic prophylaxis
     Dosage: GASTRO RESISTANT 100MG
     Route: 048
     Dates: start: 20240229
  22. TEGOPRAZAN [Concomitant]
     Active Substance: TEGOPRAZAN
     Indication: Dyspepsia
     Dosage: ODT 50MG
     Route: 048
     Dates: start: 20240301
  23. ANYDIPINE [Concomitant]
     Indication: Hypertension
     Route: 048
     Dates: start: 20240413
  24. Yuhan dexamethasone [Concomitant]
     Indication: Prophylaxis
     Dosage: INJ 5MG/1ML/AM
     Route: 042
     Dates: start: 20240228, end: 20240301
  25. Yuhan dexamethasone [Concomitant]
     Indication: Prophylaxis
     Dosage: DISODIUM PHOSPHATE INJ
     Route: 042
     Dates: start: 20240418
  26. AMOSARTAN [Concomitant]
     Indication: Hypertension
     Dosage: 5/100MG
     Route: 048
     Dates: start: 20240304, end: 20240320
  27. MAXIPIME [Concomitant]
     Active Substance: CEFEPIME HYDROCHLORIDE
     Indication: Antibiotic prophylaxis
     Dosage: INJ 1G
     Route: 042
     Dates: start: 20240408
  28. Daihan lidocaine hcl [Concomitant]
     Indication: Premedication
     Dosage: UNIT DOSE: 2 VIAL
     Route: 030
     Dates: start: 20240313, end: 20240314
  29. Daihan lidocaine hcl [Concomitant]
     Indication: Premedication
     Dosage: UNIT DOSE: 2 VIAL. 2% INJ 5ML
     Route: 030
     Dates: start: 20240327, end: 20240328
  30. MEPERIDINE [Concomitant]
     Active Substance: MEPERIDINE
     Indication: Premedication
     Route: 042
     Dates: start: 20240327, end: 20240328
  31. MEPERIDINE [Concomitant]
     Active Substance: MEPERIDINE
     Indication: Premedication
     Dosage: MYUNGMOON INJ 50MG/ML
     Route: 030
     Dates: start: 20240313, end: 20240314

REACTIONS (3)
  - Hypophagia [Recovering/Resolving]
  - Asthenia [Recovering/Resolving]
  - Anaemia [Recovered/Resolved]

NARRATIVE: CASE EVENT DATE: 20240408
